FAERS Safety Report 9305965 (Version 2)
Quarter: 2013Q3

REPORT INFORMATION
  Report Type: Spontaneous
  Country: US (occurrence: US)
  Receive Date: 20130523
  Receipt Date: 20130703
  Transmission Date: 20140515
  Serious: Yes (Death, Hospitalization, Other)
  Sender: FDA-Public Use
  Company Number: US-VERTEX PHARMACEUTICALS INC-2013-006168

PATIENT
  Sex: 0

DRUGS (3)
  1. INCIVEK [Suspect]
     Indication: HEPATITIS C
  2. PEGINTERFERON [Suspect]
  3. RIBAVIRIN [Suspect]

REACTIONS (15)
  - Septic shock [Fatal]
  - Hyponatraemia [Unknown]
  - Encephalopathy [Unknown]
  - Pneumonia [Unknown]
  - Dehydration [Unknown]
  - Drug reaction with eosinophilia and systemic symptoms [Unknown]
  - Rash [Unknown]
  - Anaemia [Unknown]
  - Gastrointestinal disorder [Unknown]
  - Depression [Unknown]
  - Fatigue [Unknown]
  - Retinopathy [Unknown]
  - Pruritus [Unknown]
  - Anorectal discomfort [Unknown]
  - Drug ineffective [Unknown]
